FAERS Safety Report 21099028 (Version 1)
Quarter: 2022Q3

REPORT INFORMATION
  Report Type: Spontaneous
  Country: US (occurrence: None)
  Receive Date: 20220718
  Receipt Date: 20220718
  Transmission Date: 20221027
  Serious: Yes (Hospitalization)
  Sender: FDA-Public Use
  Company Number: None

PATIENT
  Age: 63 Year
  Sex: Female
  Weight: 74.3 kg

DRUGS (2)
  1. BENDEKA [Suspect]
     Active Substance: BENDAMUSTINE HYDROCHLORIDE
     Indication: Waldenstrom^s macroglobulinaemia
     Dosage: FREQUENCY : MONTHLY;?
     Route: 042
     Dates: start: 20200220, end: 20220627
  2. BENDAMUSTINE [Concomitant]
     Active Substance: BENDAMUSTINE
     Dates: start: 20200220, end: 20220627

REACTIONS (2)
  - Dyspnoea [None]
  - Chest pain [None]

NARRATIVE: CASE EVENT DATE: 20220627
